FAERS Safety Report 10200613 (Version 2)
Quarter: 2014Q2

REPORT INFORMATION
  Report Type: Spontaneous
  Country: US (occurrence: US)
  Receive Date: 20140528
  Receipt Date: 20140528
  Transmission Date: 20141212
  Serious: No
  Sender: FDA-Public Use
  Company Number: US-DRREDDYS-USA/USA/14/0037881

PATIENT
  Age: 66 Year
  Sex: Female
  Weight: 68.04 kg

DRUGS (1)
  1. IBANDRONATE SODIUM TABLETS 150 MG [Suspect]
     Indication: OSTEOPOROSIS
     Route: 048

REACTIONS (2)
  - Erythema [Recovered/Resolved]
  - Pruritus [Recovered/Resolved]
